FAERS Safety Report 5711895-3 (Version None)
Quarter: 2008Q2

REPORT INFORMATION
  Report Type: 
  Country: None (occurrence: None)
  Receive Date: 20080421
  Receipt Date: 20080416
  Transmission Date: 20081010
  Serious: Yes (Hospitalization)
  Sender: FDA-Public Use
  Company Number: JP-BOEHRINGER INGELHEIM GMBH, GERMANY-2008-BP-00300NB

PATIENT
  Sex: Male
  Weight: 45 kg

DRUGS (8)
  1. SPIRIVA [Suspect]
     Indication: CHRONIC OBSTRUCTIVE PULMONARY DISEASE
     Route: 055
     Dates: start: 20060203, end: 20061228
  2. KLARICID [Suspect]
     Indication: PRODUCTIVE COUGH
     Route: 048
     Dates: start: 20071207, end: 20071209
  3. COSAICHILL [Suspect]
     Route: 048
     Dates: end: 20071228
  4. ADALAT [Concomitant]
     Indication: HYPERTENSION
     Route: 048
  5. HOKUNALIN [Concomitant]
     Indication: ASTHMA
     Route: 062
  6. FLUTIDE [Concomitant]
     Indication: ASTHMA
     Route: 055
  7. LOPRESSOR [Concomitant]
     Indication: HYPERTENSION
     Route: 048
  8. PURSENNID (SENNOSIDE) [Concomitant]
     Indication: CONSTIPATION
     Route: 048

REACTIONS (3)
  - FEELING ABNORMAL [None]
  - PRODUCTIVE COUGH [None]
  - URINARY RETENTION [None]
